FAERS Safety Report 8363591-4 (Version None)
Quarter: 2012Q2

REPORT INFORMATION
  Report Type: 
  Country: None (occurrence: None)
  Receive Date: 20120516
  Receipt Date: 20120507
  Transmission Date: 20120825
  Serious: Yes (Hospitalization, Disabling)
  Sender: FDA-Public Use
  Company Number: AU-JNJFOC-20120409323

PATIENT
  Sex: Female

DRUGS (2)
  1. REMICADE [Suspect]
     Indication: CROHN'S DISEASE
     Dosage: TOTAL NUMBER OF DOSES ADMINISTERED 3
     Route: 042
     Dates: start: 20120321
  2. REMICADE [Suspect]
     Route: 042

REACTIONS (2)
  - MALAISE [None]
  - FISTULA [None]
